FAERS Safety Report 19571339 (Version 2)
Quarter: 2021Q3

REPORT INFORMATION
  Report Type: Spontaneous
  Country: CA (occurrence: CA)
  Receive Date: 20210716
  Receipt Date: 20210727
  Transmission Date: 20211014
  Serious: Yes (Life-Threatening, Other)
  Sender: FDA-Public Use
  Company Number: CA-ASTRAZENECA-2021A611536

PATIENT
  Age: 57 Year
  Sex: Male
  Weight: 91.2 kg

DRUGS (15)
  1. MYLAN NITRO [Concomitant]
     Active Substance: NITROGLYCERIN
  2. BISOPROLOL [Concomitant]
     Active Substance: BISOPROLOL
  3. DIGOXIN. [Concomitant]
     Active Substance: DIGOXIN
  4. CICLESONIDE [Concomitant]
     Active Substance: CICLESONIDE
  5. ATIVAN [Concomitant]
     Active Substance: LORAZEPAM
     Dosage: 1 MG 2 TO 3 TIMES
     Route: 060
  6. ASPIRIN ALUMINIUM [Concomitant]
     Active Substance: ASPIRIN ALUMINUM
  7. LIPITOR [Concomitant]
     Active Substance: ATORVASTATIN CALCIUM
  8. MONTELUKAST SODIUM. [Concomitant]
     Active Substance: MONTELUKAST SODIUM
  9. TOZINAMERAN. [Suspect]
     Active Substance: TOZINAMERAN
     Indication: COVID-19 IMMUNISATION
     Dosage: 1ST DOSE, SINGLE
     Route: 065
     Dates: start: 20210414, end: 20210414
  10. ELIQUIS [Concomitant]
     Active Substance: APIXABAN
  11. VENTOLIN [Concomitant]
     Active Substance: ALBUTEROL SULFATE
  12. BENZYDAMINE HCL [Concomitant]
  13. OMNARIS [Suspect]
     Active Substance: CICLESONIDE
     Indication: ASTHMA
     Route: 045
  14. SYMBICORT [Suspect]
     Active Substance: BUDESONIDE\FORMOTEROL FUMARATE DIHYDRATE
     Dosage: THREE PUFFS TWICE A DAY
     Route: 055
  15. FUROSEMIDE. [Concomitant]
     Active Substance: FUROSEMIDE

REACTIONS (34)
  - Choking [Recovered/Resolved]
  - Chills [Recovered/Resolved]
  - Eye pain [Recovering/Resolving]
  - Hiccups [Recovered/Resolved]
  - Dysphagia [Recovered/Resolved]
  - Eye disorder [Recovering/Resolving]
  - Sensory loss [Recovering/Resolving]
  - Abdominal pain upper [Recovering/Resolving]
  - Pyrexia [Recovered/Resolved]
  - Throat tightness [Recovered/Resolved]
  - Syncope [Recovering/Resolving]
  - Deafness [Recovered/Resolved]
  - Dyspnoea [Recovered/Resolved]
  - Hyperhidrosis [Recovering/Resolving]
  - Dizziness [Recovering/Resolving]
  - Asthma [Recovering/Resolving]
  - Pain in extremity [Recovered/Resolved]
  - Throat irritation [Recovering/Resolving]
  - Nervousness [Recovered/Resolved]
  - Ear discomfort [Recovered/Resolved]
  - Fatigue [Recovering/Resolving]
  - Arrhythmia [Recovering/Resolving]
  - Dysgeusia [Recovering/Resolving]
  - Hyperventilation [Recovering/Resolving]
  - Hypersensitivity [Recovering/Resolving]
  - Anxiety [Unknown]
  - Delirium [Recovering/Resolving]
  - Feeling hot [Unknown]
  - Tinnitus [Recovered/Resolved]
  - Vaccination site pain [Recovering/Resolving]
  - Myalgia [Recovering/Resolving]
  - Chest pain [Recovering/Resolving]
  - Panic attack [Recovering/Resolving]
  - Toothache [Recovered/Resolved]

NARRATIVE: CASE EVENT DATE: 20210412
